FAERS Safety Report 8187588-2 (Version None)
Quarter: 2012Q1

REPORT INFORMATION
  Report Type: 
  Country: None (occurrence: None)
  Receive Date: 20120306
  Receipt Date: 20120222
  Transmission Date: 20120608
  Serious: Yes (Hospitalization)
  Sender: FDA-Public Use
  Company Number: JP-ELI_LILLY_AND_COMPANY-JP200903003543

PATIENT
  Sex: Male
  Weight: 108 kg

DRUGS (68)
  1. ZYPREXA [Suspect]
     Dosage: 20 MG, QD
     Route: 048
     Dates: start: 20040602, end: 20040817
  2. ZYPREXA [Suspect]
     Dosage: 20 MG, QD
     Route: 048
     Dates: start: 20070113, end: 20081212
  3. TASMOLIN [Concomitant]
     Dosage: 2 MG, TID
     Route: 048
     Dates: start: 20081004, end: 20081128
  4. TASMOLIN [Concomitant]
     Dosage: 2 MG, BID
     Route: 048
     Dates: start: 20081129, end: 20090104
  5. LEVOTOMIN [Concomitant]
     Indication: SCHIZOPHRENIA
     Dosage: 25 MG, QD
     Route: 048
     Dates: start: 20040512, end: 20040822
  6. LEVOTOMIN [Concomitant]
     Dosage: 10 MG, QD
     Route: 048
     Dates: start: 20040818, end: 20040908
  7. ASASION [Concomitant]
     Dosage: 0.25 MG, PRN
     Route: 048
     Dates: start: 20080627
  8. DIAZEPAM [Concomitant]
     Indication: AKATHISIA
     Dosage: 5 MG, QD
     Route: 048
     Dates: start: 20080628
  9. FLUNITRAZEPAM [Concomitant]
     Dosage: 1 MG, QD
     Route: 048
     Dates: start: 20041026, end: 20050927
  10. FLUNITRAZEPAM [Concomitant]
     Dosage: 2 MG, PRN
     Route: 048
     Dates: start: 20070220
  11. SEROQUEL [Concomitant]
     Dosage: 150 MG, BID
     Route: 048
     Dates: start: 20090104, end: 20090113
  12. ETISEDAN [Concomitant]
     Dosage: 0.5 MG, BID
     Route: 048
     Dates: start: 20081018, end: 20081128
  13. ZYPREXA [Suspect]
     Dosage: 12.5 MG, QD
     Route: 048
     Dates: start: 20050204, end: 20050927
  14. TASMOLIN [Concomitant]
     Indication: EXTRAPYRAMIDAL DISORDER
     Dosage: 1 MG, TID
     Route: 048
     Dates: start: 20040512, end: 20040621
  15. TASMOLIN [Concomitant]
     Dosage: 2 MG, QD
     Route: 048
     Dates: start: 20040708, end: 20040722
  16. TASMOLIN [Concomitant]
     Dosage: 1.5 MG, BID
     Route: 048
     Dates: start: 20090105, end: 20090113
  17. LEVOTOMIN [Concomitant]
     Dosage: 10 MG, QD
     Route: 048
     Dates: start: 20060805, end: 20061220
  18. FLUNITRAZEPAM [Concomitant]
     Dosage: 2 MG, QD
     Route: 048
     Dates: start: 20070310, end: 20080411
  19. FLUNITRAZEPAM [Concomitant]
     Dosage: 2 MG, QD
     Route: 048
     Dates: start: 20081004, end: 20090204
  20. ZYPREXA [Suspect]
     Indication: SCHIZOPHRENIA
     Dosage: 15 MG, QD
     Route: 048
     Dates: start: 20040528, end: 20040601
  21. ZYPREXA [Suspect]
     Dosage: 20 MG, QD
     Dates: start: 20050928, end: 20070112
  22. ZYPREXA [Suspect]
     Dosage: 15 MG, QD
     Route: 048
     Dates: start: 20090105, end: 20090127
  23. TASMOLIN [Concomitant]
     Dosage: 1 MG, BID
     Dates: start: 20040714, end: 20040722
  24. TASMOLIN [Concomitant]
     Dosage: 1 MG, TID
     Route: 048
     Dates: start: 20080614, end: 20080626
  25. LORAZEPAM [Concomitant]
     Dosage: 1.5 MG, TID
     Route: 048
     Dates: start: 20040512, end: 20040722
  26. LORAZEPAM [Concomitant]
     Dosage: 1.5 MG, TID
     Route: 048
     Dates: start: 20050928, end: 20051011
  27. ELIETEN [Concomitant]
     Indication: NAUSEA
     Dosage: 5 MG, TID
     Route: 048
     Dates: start: 20080319, end: 20080328
  28. ELIETEN [Concomitant]
     Dosage: 5 MG, BID
     Route: 048
     Dates: start: 20090114, end: 20090204
  29. LEVOTOMIN [Concomitant]
     Dosage: 25 MG, PRN
     Route: 048
     Dates: start: 20080909, end: 20090204
  30. DIAZEPAM [Concomitant]
     Dosage: 5 MG, QD
     Route: 048
     Dates: start: 20070804, end: 20071026
  31. TASMOLIN [Concomitant]
     Dosage: 2 MG, QD
     Route: 048
     Dates: start: 20040818, end: 20050203
  32. LORAZEPAM [Concomitant]
     Dosage: 0.5 MG, BID
     Route: 048
     Dates: start: 20040723, end: 20040817
  33. ELIETEN [Concomitant]
     Dosage: 5 MG, TID
     Route: 048
     Dates: start: 20080428, end: 20080527
  34. CLONAZEPAM [Concomitant]
     Dosage: 4 MG, QD
     Route: 048
     Dates: start: 20081004, end: 20090204
  35. SEROQUEL [Concomitant]
     Indication: SCHIZOPHRENIA
     Dosage: 100 MG, TID
     Route: 048
     Dates: start: 20040512, end: 20040524
  36. SEROQUEL [Concomitant]
     Dosage: 200 MG, BID
     Route: 048
     Dates: start: 20090127, end: 20090204
  37. ZYPREXA [Suspect]
     Dosage: 10 MG, QD
     Route: 048
     Dates: start: 20081213, end: 20081226
  38. ZYPREXA [Suspect]
     Dosage: 20 MG, QD
     Route: 048
     Dates: start: 20081227, end: 20090104
  39. TASMOLIN [Concomitant]
     Dosage: 2 MG, BID
     Dates: start: 20040723, end: 20040817
  40. TASMOLIN [Concomitant]
     Dosage: 2 MG, TID
     Route: 048
     Dates: start: 20060121, end: 20060303
  41. TASMOLIN [Concomitant]
     Dosage: 2 MG, QD
     Route: 048
     Dates: start: 20070908, end: 20080104
  42. TASMOLIN [Concomitant]
     Dosage: 5 MG, QD
     Route: 048
     Dates: start: 20080627, end: 20081003
  43. TASMOLIN [Concomitant]
     Dosage: 1 MG, QD
     Route: 048
     Dates: start: 20090114, end: 20090204
  44. LEVOTOMIN [Concomitant]
     Dosage: 10 MG, QD
     Route: 048
     Dates: start: 20051224, end: 20060314
  45. ASASION [Concomitant]
     Indication: SCHIZOPHRENIA
     Dosage: 0.25 MG, QD
     Route: 048
     Dates: start: 20040713, end: 20040805
  46. CLONAZEPAM [Concomitant]
     Dosage: 2 MG, PRN
     Route: 048
     Dates: start: 20080624
  47. ZYPREXA [Suspect]
     Dosage: 10 MG, QD
     Route: 048
     Dates: start: 20040818, end: 20050203
  48. TASMOLIN [Concomitant]
     Dosage: 1 MG, BID
     Route: 048
     Dates: start: 20051224, end: 20060120
  49. LORAZEPAM [Concomitant]
     Indication: SCHIZOPHRENIA
     Dosage: 0.5 MG, TID
     Route: 048
     Dates: start: 20080319, end: 20080328
  50. CLONAZEPAM [Concomitant]
     Indication: AKATHISIA
     Dosage: 1 MG, QD
     Route: 048
     Dates: start: 20070223, end: 20070310
  51. SEROQUEL [Concomitant]
     Dosage: 100 MG, BID
     Route: 048
     Dates: start: 20081213, end: 20090104
  52. SEROQUEL [Concomitant]
     Dosage: 200 MG, QD
     Route: 048
     Dates: start: 20090114, end: 20090127
  53. ZYPREXA [Suspect]
     Dosage: 10 MG, QD
     Route: 048
     Dates: start: 20090128, end: 20090203
  54. TASMOLIN [Concomitant]
     Dosage: 2 MG, TID
     Route: 048
     Dates: start: 20040622, end: 20040707
  55. TASMOLIN [Concomitant]
     Dosage: 2 MG, PRN
     Route: 048
     Dates: start: 20070815
  56. TASMOLIN [Concomitant]
     Dosage: 1 MG, BID
     Route: 048
     Dates: start: 20070815, end: 20070907
  57. TASMOLIN [Concomitant]
     Dosage: 1 MG, BID
     Route: 048
     Dates: start: 20080105, end: 20080613
  58. LEVOTOMIN [Concomitant]
     Dosage: 25 MG, QD
     Route: 048
     Dates: start: 20040909, end: 20041025
  59. LEVOTOMIN [Concomitant]
     Dosage: 5 MG, QD
     Route: 048
     Dates: start: 20060315, end: 20060804
  60. DIAZEPAM [Concomitant]
     Dosage: 10 MG, QD
     Route: 048
     Dates: start: 20060422
  61. FLUNITRAZEPAM [Concomitant]
     Indication: SCHIZOPHRENIA
     Dosage: 1 MG, QD
     Route: 048
     Dates: start: 20040723, end: 20040805
  62. FLUNITRAZEPAM [Concomitant]
     Dosage: 2 MG, QD
     Route: 048
     Dates: start: 20071208, end: 20080201
  63. ETISEDAN [Concomitant]
     Indication: SCHIZOPHRENIA
     Dosage: 1 MG, QD
     Route: 048
     Dates: start: 20051012, end: 20051223
  64. ETISEDAN [Concomitant]
     Dosage: 0.5 MG, QD
     Route: 048
     Dates: start: 20081129, end: 20090113
  65. ZYPREXA [Suspect]
     Indication: SCHIZOPHRENIA
     Dosage: 10 MG, QD
     Route: 048
     Dates: start: 20040521, end: 20040524
  66. ZYPREXA [Suspect]
     Dosage: 20 MG, QD
     Route: 048
     Dates: start: 20040525, end: 20040527
  67. TASMOLIN [Concomitant]
     Dosage: 2 MG, QD
     Route: 048
     Dates: start: 20061004, end: 20061030
  68. ASASION [Concomitant]
     Dosage: 0.25 MG, QD
     Route: 048
     Dates: start: 20040909, end: 20080411

REACTIONS (3)
  - DYSPHAGIA [None]
  - DYSTONIA [None]
  - PSYCHIATRIC SYMPTOM [None]
